FAERS Safety Report 7245733-7 (Version None)
Quarter: 2011Q1

REPORT INFORMATION
  Report Type: 
  Country: None (occurrence: None)
  Receive Date: 20110126
  Receipt Date: 20110118
  Transmission Date: 20110831
  Serious: Yes (Other)
  Sender: FDA-Public Use
  Company Number: CH-ROCHE-754385

PATIENT
  Age: 61 Year
  Sex: Female

DRUGS (6)
  1. SORTIS [Suspect]
     Route: 048
  2. ASPIRIN [Suspect]
     Route: 048
  3. RENITEN [Suspect]
     Route: 048
  4. PANTOZOL [Concomitant]
  5. BONIVA [Suspect]
     Route: 040
     Dates: start: 20100302, end: 20100902
  6. PLAQUENIL [Suspect]
     Route: 048
     Dates: start: 19990101

REACTIONS (1)
  - HEPATITIS CHOLESTATIC [None]
